FAERS Safety Report 18204680 (Version 1)
Quarter: 2020Q3

REPORT INFORMATION
  Report Type: Spontaneous
  Country: US (occurrence: US)
  Receive Date: 20200827
  Receipt Date: 20200827
  Transmission Date: 20201103
  Serious: Yes (Hospitalization, Other)
  Sender: FDA-Public Use
  Company Number: US-GLAXOSMITHKLINE-US2020GSK170112

PATIENT
  Age: 75 Year
  Sex: Male
  Weight: 57.7 kg

DRUGS (7)
  1. ACYCLOVIR. [Suspect]
     Active Substance: ACYCLOVIR
     Indication: VARICELLA ZOSTER VIRUS INFECTION
     Dosage: 10 MG/KG, Z EVERY 8 H
     Route: 042
  2. ACYCLOVIR. [Suspect]
     Active Substance: ACYCLOVIR
     Indication: POLYNEUROPATHY
     Dosage: UNK
     Route: 042
  3. MYCOPHENOLATE MOFETIL. [Concomitant]
     Active Substance: MYCOPHENOLATE MOFETIL
     Indication: IMMUNOSUPPRESSION
     Dosage: UNK
  4. CEFEPIME [Concomitant]
     Active Substance: CEFEPIME HYDROCHLORIDE
     Indication: MEDIASTINITIS
     Dosage: UNK
  5. TACROLIMUS. [Concomitant]
     Active Substance: TACROLIMUS
     Indication: IMMUNOSUPPRESSION
     Dosage: UNK
  6. ACYCLOVIR. [Suspect]
     Active Substance: ACYCLOVIR
     Indication: HERPES ZOSTER REACTIVATION
     Dosage: UNK
  7. PREDNISONE. [Concomitant]
     Active Substance: PREDNISONE
     Indication: IMMUNOSUPPRESSION
     Dosage: UNK

REACTIONS (17)
  - Neurotoxicity [Recovered/Resolved]
  - Disorientation [Recovered/Resolved]
  - Nervous system disorder [Recovered/Resolved]
  - Hyporeflexia [Recovering/Resolving]
  - Hyporesponsive to stimuli [Recovered/Resolved]
  - Computerised tomogram abnormal [Unknown]
  - Mental status changes [Recovered/Resolved]
  - Cerebrovascular accident [Unknown]
  - Muscular weakness [Recovering/Resolving]
  - Muscle atrophy [Recovering/Resolving]
  - Muscle contractions involuntary [Recovering/Resolving]
  - Confusional state [Recovered/Resolved]
  - Hallucination [Recovered/Resolved]
  - Paralysis [Recovering/Resolving]
  - Encephalopathy [Recovered/Resolved]
  - Depressed level of consciousness [Recovered/Resolved]
  - Ketoacidosis [Unknown]
